FAERS Safety Report 6645765-3 (Version None)
Quarter: 2010Q1

REPORT INFORMATION
  Report Type: 
  Country: None (occurrence: None)
  Receive Date: 20100309
  Receipt Date: 20100126
  Transmission Date: 20100710
  Serious: Yes (Other)
  Sender: FDA-Public Use
  Company Number: 2010SP005840

PATIENT
  Age: 42 Year
  Sex: Female

DRUGS (1)
  1. SAPHRIS [Suspect]
     Indication: DRUG USE FOR UNKNOWN INDICATION
     Dosage: 5 MG;

REACTIONS (3)
  - FALL [None]
  - HEAD INJURY [None]
  - LOSS OF CONSCIOUSNESS [None]
